FAERS Safety Report 6916018-0 (Version None)
Quarter: 2010Q3

REPORT INFORMATION
  Report Type: 
  Country: None (occurrence: None)
  Receive Date: 20100810
  Receipt Date: 20100727
  Transmission Date: 20110219
  Serious: No
  Sender: FDA-Public Use
  Company Number: FR-BIOGENIDEC-2010BI005695

PATIENT
  Age: 45 Year
  Sex: Male

DRUGS (1)
  1. TYSABRI [Suspect]
     Indication: RELAPSING-REMITTING MULTIPLE SCLEROSIS
     Route: 042
     Dates: start: 20080613, end: 20090415

REACTIONS (3)
  - LEUKOCYTOSIS [None]
  - MULTIPLE SCLEROSIS RELAPSE [None]
  - NEUTROPHILIA [None]
